FAERS Safety Report 25540436 (Version 1)
Quarter: 2025Q3

REPORT INFORMATION
  Report Type: Spontaneous
  Country: US (occurrence: US)
  Receive Date: 20250710
  Receipt Date: 20250710
  Transmission Date: 20251021
  Serious: Yes (Hospitalization)
  Sender: NOVARTIS
  Company Number: US-002147023-NVSC2025US108656

PATIENT
  Age: 26 Year
  Sex: Female

DRUGS (2)
  1. DABRAFENIB [Suspect]
     Active Substance: DABRAFENIB
     Indication: Malignant melanoma
     Route: 065
     Dates: start: 202311
  2. TRAMETINIB [Suspect]
     Active Substance: TRAMETINIB
     Indication: Malignant melanoma
     Route: 065
     Dates: start: 202311

REACTIONS (1)
  - Neutrophilic panniculitis [Recovered/Resolved]

NARRATIVE: CASE EVENT DATE: 20230101
